FAERS Safety Report 5955739-3 (Version None)
Quarter: 2008Q4

REPORT INFORMATION
  Report Type: 
  Country: None (occurrence: None)
  Receive Date: 20081117
  Receipt Date: 20081107
  Transmission Date: 20090506
  Serious: No
  Sender: FDA-Public Use
  Company Number: US-B.I. PHARMACEUTICALS,INC./RIDGEFIELD-2008-BP-16208BP

PATIENT
  Sex: Male
  Weight: 84 kg

DRUGS (8)
  1. SPIRIVA [Suspect]
     Indication: DYSPNOEA
     Dosage: 18MCG
  2. BLOOD PRESSURE MEDS [Concomitant]
  3. LISINOPRIL [Concomitant]
     Dosage: 20MG
  4. ATENOLOL [Concomitant]
     Dosage: 50MG
  5. LOVASTATIN [Concomitant]
     Dosage: 40MG
  6. PLAVIX [Concomitant]
     Dosage: 75MG
  7. HYDROCHLOROTHIAZIDE [Concomitant]
     Dosage: 12.5MG
  8. TERAZOSIN HCL [Concomitant]
     Dosage: 1MG

REACTIONS (2)
  - BLOOD PRESSURE DECREASED [None]
  - FATIGUE [None]
